FAERS Safety Report 4656559-2 (Version None)
Quarter: 2005Q2

REPORT INFORMATION
  Report Type: 
  Country: None (occurrence: None)
  Receive Date: 20050509
  Receipt Date: 20050427
  Transmission Date: 20051028
  Serious: Yes (Hospitalization)
  Sender: FDA-Public Use
  Company Number: FR-BRISTOL-MYERS SQUIBB COMPANY-12954376

PATIENT
  Age: 58 Year
  Sex: Male

DRUGS (6)
  1. CETUXIMAB [Suspect]
     Indication: COLORECTAL CANCER METASTATIC
     Dosage: FIRST INFUSION, DELAYED.
     Route: 041
     Dates: start: 20050420
  2. IRINOTECAN HCL [Suspect]
     Indication: COLORECTAL CANCER METASTATIC
     Dosage: FIRST INFUSION, DELAYED.
     Route: 042
     Dates: start: 20050420
  3. FOLINIC ACID [Suspect]
     Indication: COLORECTAL CANCER METASTATIC
     Dosage: FIRST INFUSION, DELAYED.
     Route: 042
     Dates: start: 20050420
  4. FLUOROURACIL [Suspect]
     Indication: COLORECTAL CANCER METASTATIC
     Dosage: FIRST INFUSION, 200 MG/M2 + 2800 MG/M2 EVERY 2 WEEKS. DELAYED.
     Route: 042
     Dates: start: 20050420
  5. RANITIDINE [Concomitant]
     Indication: PROPHYLAXIS AGAINST GASTROINTESTINAL ULCER
  6. HYDROXYZINE HCL [Concomitant]
     Indication: ANXIETY

REACTIONS (1)
  - FEBRILE BONE MARROW APLASIA [None]
